FAERS Safety Report 25796954 (Version 1)
Quarter: 2025Q3

REPORT INFORMATION
  Report Type: Spontaneous
  Country: US (occurrence: US)
  Receive Date: 20250912
  Receipt Date: 20250912
  Transmission Date: 20251021
  Serious: Yes (Other)
  Sender: NOVO NORDISK
  Company Number: US-NOVOPROD-1509260

PATIENT
  Age: 70 Year
  Sex: Female

DRUGS (2)
  1. OZEMPIC [Suspect]
     Active Substance: SEMAGLUTIDE
  2. OZEMPIC [Suspect]
     Active Substance: SEMAGLUTIDE
     Indication: Type 2 diabetes mellitus
     Dosage: 1 MG, QW
     Dates: start: 2024, end: 2024

REACTIONS (9)
  - Tooth infection [Recovered/Resolved]
  - Device physical property issue [Recovered/Resolved]
  - Sinusitis [Recovered/Resolved]
  - Claustrophobia [Unknown]
  - Malaise [Unknown]
  - Fungal rhinitis [Unknown]
  - Hypersensitivity [Unknown]
  - Dyspepsia [Recovered/Resolved]
  - Product label confusion [Unknown]

NARRATIVE: CASE EVENT DATE: 20240101
